FAERS Safety Report 5911398-7 (Version None)
Quarter: 2008Q4

REPORT INFORMATION
  Report Type: 
  Country: None (occurrence: None)
  Receive Date: 20081007
  Receipt Date: 20080929
  Transmission Date: 20090506
  Serious: Yes (Other)
  Sender: FDA-Public Use
  Company Number: US-PFIZER INC-2008013677

PATIENT
  Sex: Male

DRUGS (3)
  1. CLEOCIN HYDROCHLORIDE [Suspect]
     Indication: INFECTION PROPHYLAXIS
     Dates: start: 20080211
  2. MOTRIN [Concomitant]
     Dates: start: 20080211
  3. VICODIN [Concomitant]
     Dates: start: 20080211

REACTIONS (1)
  - CHROMATURIA [None]
